FAERS Safety Report 7875393-3 (Version None)
Quarter: 2011Q4

REPORT INFORMATION
  Report Type: 
  Country: None (occurrence: None)
  Receive Date: 20111031
  Receipt Date: 20111024
  Transmission Date: 20120403
  Serious: Yes (Death)
  Sender: FDA-Public Use
  Company Number: US-GLAXOSMITHKLINE-B0759039A

PATIENT
  Age: 67 Year
  Sex: Male

DRUGS (10)
  1. EMEND [Concomitant]
     Dates: start: 20110714, end: 20110714
  2. NAPROXEN [Concomitant]
     Dates: start: 20080101, end: 20110606
  3. CALCIUM WITH VITAMIN D [Concomitant]
  4. FOSAMAX [Concomitant]
     Dates: start: 20050101, end: 20110606
  5. OMEPRAZOLE [Concomitant]
     Dates: start: 20010101, end: 20110110
  6. PAZOPANIB [Suspect]
     Indication: NON-SMALL CELL LUNG CANCER
     Dosage: 600MG PER DAY
     Dates: start: 20110114, end: 20110707
  7. CLEOCIN T [Concomitant]
     Dates: start: 20110203, end: 20110801
  8. ERLOTINIB HYDROCHLORIDE [Suspect]
     Indication: LUNG ADENOCARCINOMA
     Dosage: 150MG PER DAY
     Route: 048
     Dates: start: 20110114, end: 20110707
  9. DENOSUMAB [Concomitant]
     Dates: start: 20110714, end: 20110714
  10. NEULASTA [Concomitant]
     Dates: start: 20090213, end: 20110722

REACTIONS (1)
  - DISEASE PROGRESSION [None]
